FAERS Safety Report 21313031 (Version 1)
Quarter: 2022Q3

REPORT INFORMATION
  Report Type: Report from Study
  Country: IE (occurrence: None)
  Receive Date: 20220909
  Receipt Date: 20220909
  Transmission Date: 20221026
  Serious: Yes (Hospitalization)
  Sender: FDA-Public Use
  Company Number: IE-ROCHE-3173947

PATIENT
  Age: 47 Year
  Sex: Female
  Weight: 72.4 kg

DRUGS (1)
  1. PRALSETINIB [Suspect]
     Active Substance: PRALSETINIB
     Indication: Non-small cell lung cancer
     Dosage: ON 2/AUG/2022, SHE RECEIVED MOST RECENT DOSE OF PRALSETINIB PRIOR TO ADVERSE EVENT
     Route: 048

REACTIONS (3)
  - Abdominal distension [Unknown]
  - Blood lactate dehydrogenase increased [Unknown]
  - Intestinal obstruction [Unknown]

NARRATIVE: CASE EVENT DATE: 20220831
